FAERS Safety Report 13722044 (Version 1)
Quarter: 2017Q3

REPORT INFORMATION
  Report Type: Spontaneous
  Country: US (occurrence: US)
  Receive Date: 20170706
  Receipt Date: 20170706
  Transmission Date: 20171127
  Serious: No
  Sender: FDA-Public Use
  Company Number: US-PFIZER INC-2017285257

PATIENT
  Age: 69 Year
  Sex: Female

DRUGS (8)
  1. CATAPRES [Suspect]
     Active Substance: CLONIDINE HYDROCHLORIDE
     Dosage: UNK
  2. DEXAMETHASONE. [Suspect]
     Active Substance: DEXAMETHASONE
     Dosage: UNK
  3. DECADRON [Suspect]
     Active Substance: DEXAMETHASONE
     Dosage: UNK
  4. LAC-HYDRIN [Suspect]
     Active Substance: AMMONIUM LACTATE
     Dosage: UNK
  5. NUBAINE [Suspect]
     Active Substance: NALBUPHINE HYDROCHLORIDE
     Dosage: UNK
  6. PROCARDIA [Suspect]
     Active Substance: NIFEDIPINE
     Dosage: UNK
  7. CLINDAMYCIN HCL [Suspect]
     Active Substance: CLINDAMYCIN HYDROCHLORIDE
     Dosage: UNK
  8. DICLOXACILLIN [Suspect]
     Active Substance: DICLOXACILLIN
     Dosage: UNK

REACTIONS (1)
  - Drug hypersensitivity [Unknown]
